FAERS Safety Report 8697949 (Version 2)
Quarter: 2012Q4

REPORT INFORMATION
  Report Type: 
  Country: US (occurrence: US)
  Receive Date: 20120801
  Receipt Date: 20121108
  Transmission Date: 20130627
  Serious: Yes (Hospitalization)
  Sender: FDA-Public Use
  Company Number: US-RB-042944-12

PATIENT
  Age: 55 Year
  Sex: Male

DRUGS (4)
  1. GENERIC BUPRENORPHINE [Suspect]
     Indication: DRUG DEPENDENCE
     Route: 060
     Dates: start: 2012, end: 201207
  2. SUBUTEX [Suspect]
     Indication: DRUG DEPENDENCE
     Route: 060
     Dates: start: 2010, end: 201207
  3. XANAX [Concomitant]
     Indication: ANXIETY
     Dosage: Dosing details unknown
     Route: 065
  4. AMBIEN [Concomitant]
     Indication: INSOMNIA
     Dosage: Dosing details unknown
     Route: 065

REACTIONS (1)
  - Renal failure [Recovered/Resolved]
